FAERS Safety Report 20174912 (Version 1)
Quarter: 2021Q4

REPORT INFORMATION
  Report Type: Spontaneous
  Country: US (occurrence: None)
  Receive Date: 20211209
  Receipt Date: 20211209
  Transmission Date: 20220303
  Serious: Yes (Death, Life-Threatening, Other)
  Sender: FDA-Public Use
  Company Number: None

PATIENT
  Age: 57 Year
  Sex: Male
  Weight: 105.2 kg

DRUGS (14)
  1. BARICITINIB [Suspect]
     Active Substance: BARICITINIB
     Indication: COVID-19
     Dosage: FREQUENCY : DAILY;?
     Route: 048
     Dates: start: 20211117, end: 20211123
  2. ALBUTEROL [Concomitant]
     Active Substance: ALBUTEROL
  3. MAALOX MAX [Concomitant]
     Active Substance: ALUMINUM HYDROXIDE\DIMETHICONE\MAGNESIUM HYDROXIDE
  4. ASCORBIC ACID [Concomitant]
     Active Substance: ASCORBIC ACID
  5. ATORVASTATIN [Concomitant]
     Active Substance: ATORVASTATIN
  6. DEXAMETHASONE [Concomitant]
     Active Substance: DEXAMETHASONE
  7. ENOXAPARIN [Concomitant]
     Active Substance: ENOXAPARIN
  8. Famotadine [Concomitant]
  9. FUROSEMIDE [Concomitant]
     Active Substance: FUROSEMIDE
  10. Ipratropium/albuterol neb [Concomitant]
  11. REMDESIVIR [Concomitant]
     Active Substance: REMDESIVIR
  12. SODIUM CHLORIDE [Concomitant]
     Active Substance: SODIUM CHLORIDE
  13. VITAMIN D3 [Concomitant]
     Active Substance: CHOLECALCIFEROL
  14. ZINC [Concomitant]
     Active Substance: ZINC

REACTIONS (6)
  - Acute respiratory failure [None]
  - Lactic acidosis [None]
  - Pulmonary embolism [None]
  - Duodenal perforation [None]
  - Cardiac arrest [None]
  - Gastrointestinal perforation [None]

NARRATIVE: CASE EVENT DATE: 20211122
